FAERS Safety Report 4381950-1 (Version None)
Quarter: 2004Q2

REPORT INFORMATION
  Report Type: 
  Country: None (occurrence: None)
  Receive Date: 20040615
  Receipt Date: 20040528
  Transmission Date: 20050107
  Serious: Yes (Other)
  Sender: FDA-Public Use
  Company Number: 2004215830DE

PATIENT
  Sex: Male

DRUGS (8)
  1. BEXTRA [Suspect]
     Indication: OSTEOARTHRITIS
     Dosage: 20 MG, QD, ORAL
     Route: 048
     Dates: start: 20040510, end: 20040515
  2. ALLOPURINOL [Concomitant]
  3. NEURONTIN [Concomitant]
  4. NEURO-RATIOPHARM [Concomitant]
  5. SOLEDUM (CINEOLE) [Concomitant]
  6. METOPROLOL ^RATIOPHARM^ [Concomitant]
  7. VOLTAREN [Concomitant]
  8. DICLOFENAC SODIUM [Concomitant]

REACTIONS (4)
  - BODY TEMPERATURE INCREASED [None]
  - ERYTHEMA [None]
  - PRURITUS [None]
  - RASH [None]
